FAERS Safety Report 4998417-X (Version None)
Quarter: 2006Q2

REPORT INFORMATION
  Report Type: 
  Country: None (occurrence: None)
  Receive Date: 20060508
  Receipt Date: 20060425
  Transmission Date: 20061013
  Serious: Yes (Death)
  Sender: FDA-Public Use
  Company Number: 2006050873

PATIENT
  Age: 69 Year
  Sex: Female

DRUGS (5)
  1. SINEQUAN [Suspect]
     Indication: ILL-DEFINED DISORDER
     Dosage: UNKNOWN (50 MG, UNKNOWN), ORAL
     Route: 048
  2. ASPIRIN [Suspect]
     Indication: ILL-DEFINED DISORDER
     Dosage: UNKNOWN
     Route: 065
  3. LORAZEPAM [Concomitant]
  4. DOXYCYCLINE [Concomitant]
  5. SIMVASTATIN [Concomitant]

REACTIONS (1)
  - INTENTIONAL OVERDOSE [None]
